FAERS Safety Report 10521620 (Version 2)
Quarter: 2015Q1

REPORT INFORMATION
  Report Type: Spontaneous
  Country: US (occurrence: None)
  Receive Date: 20141014
  Receipt Date: 20150108
  Transmission Date: 20150720
  Serious: Yes (Death)
  Sender: FDA-Public Use
  Company Number: 1713747-2014-999168

PATIENT
  Age: 84 Year
  Sex: Male

DRUGS (3)
  1. DELFLEX [Suspect]
     Active Substance: CALCIUM CHLORIDE\DEXTROSE MONOHYDRATE\MAGNESIUM CHLORIDE\SODIUM CHLORIDE\SODIUM LACTATE
     Indication: CHRONIC KIDNEY DISEASE
     Dosage: PERITONEAL DIALYSIS
  2. LIBERTY CYCLER SET [Concomitant]
  3. LIBERTY CYCLER [Concomitant]
     Active Substance: DEVICE

REACTIONS (2)
  - Dyspnoea [None]
  - Peritoneal dialysis [None]

NARRATIVE: CASE EVENT DATE: 20140916
